FAERS Safety Report 18449562 (Version 1)
Quarter: 2020Q4

REPORT INFORMATION
  Report Type: Spontaneous
  Country: US (occurrence: US)
  Receive Date: 20201102
  Receipt Date: 20201102
  Transmission Date: 20210114
  Serious: No
  Sender: FDA-Public Use
  Company Number: US-AMGEN-USASP2020174061

PATIENT
  Age: 80 Year
  Sex: Male
  Weight: 71.2 kg

DRUGS (1)
  1. NPLATE [Suspect]
     Active Substance: ROMIPLOSTIM
     Indication: MYELODYSPLASTIC SYNDROME
     Dosage: 250 MICROGRAM
     Route: 065

REACTIONS (2)
  - Off label use [Unknown]
  - Intercepted medication error [Unknown]

NARRATIVE: CASE EVENT DATE: 20201023
